FAERS Safety Report 8299783-2 (Version None)
Quarter: 2012Q2

REPORT INFORMATION
  Report Type: 
  Country: None (occurrence: None)
  Receive Date: 20120419
  Receipt Date: 20120419
  Transmission Date: 20120825
  Serious: Yes (Hospitalization)
  Sender: FDA-Public Use
  Company Number: None

PATIENT
  Age: 56 Year
  Sex: Female
  Weight: 65.77 kg

DRUGS (1)
  1. ALLOPURINOL [Suspect]
     Indication: GOUT
     Dosage: 300MG
     Route: 048
     Dates: start: 20110810, end: 20110928

REACTIONS (8)
  - RASH PRURITIC [None]
  - RASH MACULO-PAPULAR [None]
  - PYREXIA [None]
  - OROPHARYNGEAL PAIN [None]
  - BODY TEMPERATURE INCREASED [None]
  - DRUG HYPERSENSITIVITY [None]
  - TUBULOINTERSTITIAL NEPHRITIS [None]
  - RASH ERYTHEMATOUS [None]
